FAERS Safety Report 6195713-8 (Version None)
Quarter: 2009Q2

REPORT INFORMATION
  Report Type: 
  Country: None (occurrence: None)
  Receive Date: 20090520
  Receipt Date: 20070815
  Transmission Date: 20091009
  Serious: Yes (Hospitalization, Other)
  Sender: FDA-Public Use
  Company Number: US-ASTRAZENECA-2007UW02083

PATIENT
  Age: 13138 Day
  Sex: Female
  Weight: 104.3 kg

DRUGS (26)
  1. SEROQUEL [Suspect]
     Dosage: 25-100 MG
     Route: 048
     Dates: start: 19980601
  2. SEROQUEL [Suspect]
     Dosage: 25-100 MG
     Route: 048
     Dates: start: 20030327
  3. TRILAFON [Concomitant]
     Route: 048
  4. AMANTADINE HCL [Concomitant]
     Route: 065
  5. EFFEXOR XR [Concomitant]
     Dosage: STRENGTH 75-150 MG
     Route: 065
  6. AMBIEN [Concomitant]
     Route: 048
  7. TRANXENE [Concomitant]
     Indication: ANXIETY
     Route: 048
     Dates: start: 19990211, end: 19990313
  8. TRANXENE [Concomitant]
     Route: 048
     Dates: start: 19990518, end: 19990519
  9. NICOTINE [Concomitant]
     Route: 062
     Dates: start: 19990518, end: 19990521
  10. DEPAKOTE [Concomitant]
     Dosage: STRENGTH 250-500 MG
     Route: 065
  11. ZOCOR [Concomitant]
     Route: 048
  12. SERZONE [Concomitant]
     Dosage: STRENGTH 50-150 MG
     Route: 065
  13. RISPERDAL [Concomitant]
     Dosage: STRENGTH 1-3 MG
     Route: 065
  14. AVANDAMET [Concomitant]
     Dosage: 2/500 TWO TIMES A DAY
     Route: 065
  15. CRESTOR [Concomitant]
     Dosage: STRENGTH 10 MG
     Route: 065
  16. ASPIRIN [Concomitant]
     Dosage: STRENGTH 81-325 MG
     Route: 065
  17. NEXIUM [Concomitant]
     Dosage: STRENGTH 30 MG
     Route: 065
  18. IBUPROFEN [Concomitant]
     Route: 048
  19. LORATADINE [Concomitant]
     Route: 065
  20. ACETAMINOPHEN [Concomitant]
     Indication: PAIN
     Route: 048
  21. ZYPREXA [Concomitant]
     Dosage: STRENGTH 5-10 MG
     Route: 065
  22. WELLBUTRIN SR [Concomitant]
     Dosage: STRENGTH 10 MG
     Route: 065
  23. DIPHENHYDRAMINE HCL [Concomitant]
     Dosage: STRENGTH 50 MG
     Route: 065
  24. REMERON [Concomitant]
     Dosage: STRENGTH 15-30 MG
     Route: 065
  25. XANAX [Concomitant]
     Dosage: STRENGTH 0.5 MG
     Route: 065
  26. LAMISIL [Concomitant]
     Dosage: STRENGTH 250 MG
     Route: 065

REACTIONS (32)
  - ANXIETY [None]
  - ARTHRALGIA [None]
  - CHEST PAIN [None]
  - COUGH [None]
  - DENTAL CARIES [None]
  - DEPRESSION [None]
  - DIABETIC KETOACIDOSIS [None]
  - DIARRHOEA [None]
  - DRUG DEPENDENCE [None]
  - DYSPEPSIA [None]
  - DYSPNOEA [None]
  - GINGIVAL BLEEDING [None]
  - HYPERCHOLESTEROLAEMIA [None]
  - HYPERTRIGLYCERIDAEMIA [None]
  - INCONTINENCE [None]
  - MENSTRUATION IRREGULAR [None]
  - MYOPIA [None]
  - NEUTROPHIL COUNT INCREASED [None]
  - PANIC DISORDER [None]
  - PHARYNGITIS [None]
  - POST-TRAUMATIC STRESS DISORDER [None]
  - PREMENSTRUAL SYNDROME [None]
  - PRESBYOPIA [None]
  - SCHIZOAFFECTIVE DISORDER [None]
  - SLEEP DISORDER [None]
  - TOBACCO ABUSE [None]
  - TYPE 2 DIABETES MELLITUS [None]
  - UTERINE LEIOMYOMA [None]
  - VISION BLURRED [None]
  - VITAMIN B12 DEFICIENCY [None]
  - VULVOVAGINAL CANDIDIASIS [None]
  - WEIGHT INCREASED [None]
